FAERS Safety Report 5166556-9 (Version None)
Quarter: 2006Q4

REPORT INFORMATION
  Report Type: 
  Country: None (occurrence: None)
  Receive Date: 20061129
  Receipt Date: 20061114
  Transmission Date: 20070319
  Serious: Yes (Death)
  Sender: FDA-Public Use
  Company Number: 2006002163

PATIENT
  Sex: 0

DRUGS (1)
  1. TARCEVA [Suspect]

REACTIONS (2)
  - INFECTION [None]
  - RASH [None]
